FAERS Safety Report 9486691 (Version 1)
Quarter: 2013Q3

REPORT INFORMATION
  Report Type: Spontaneous
  Country: US (occurrence: None)
  Receive Date: 20130827
  Receipt Date: 20130827
  Transmission Date: 20140515
  Serious: Yes (Other)
  Sender: FDA-Public Use
  Company Number: None

PATIENT
  Age: 74 Year
  Sex: Female

DRUGS (31)
  1. PRAVASTATIN SODIUM [Suspect]
     Indication: BLOOD CHOLESTEROL ABNORMAL
     Route: 048
     Dates: start: 20130629, end: 20130811
  2. ADVAIR DISKUS INHALATION [Concomitant]
  3. AEROSOL POWDER BREATH [Concomitant]
  4. AGGRENOX [Concomitant]
  5. AMITIZA [Concomitant]
  6. BONIVA [Concomitant]
  7. CARAFATE [Concomitant]
  8. ESTRACE VAGINAL CREAM [Concomitant]
  9. FENTANYL TRANSDERMAL PATCH [Concomitant]
  10. FERREX [Concomitant]
  11. FLUTICASONE PROPIONATE [Concomitant]
  12. FUROSEMIDE [Concomitant]
  13. LEVOCETIRIZINE DIHYDROCHLORIDE [Concomitant]
  14. LEVOTHYROXINE SODIUM [Concomitant]
  15. LIDODERM EXTERNAL PATCH [Concomitant]
  16. LISINOPRIL [Concomitant]
  17. LORAZEPAM [Concomitant]
  18. NEXIUM [Concomitant]
  19. NITROSTATE [Concomitant]
  20. OMEGA-3 [Concomitant]
  21. OXYCODO-ACETAMINOPHEN [Concomitant]
  22. POLYSACCHARIDE IRON COMPLEX [Concomitant]
  23. PRAVASTATIN SODIUM [Concomitant]
  24. PROAIR HFA [Concomitant]
  25. AEROSOL SOLUTION [Concomitant]
  26. SERTRALINE HCI [Concomitant]
  27. SPIRIVA HANDIHALER [Concomitant]
  28. STOOL SOFTENE [Concomitant]
  29. VAGIFEM [Concomitant]
  30. VITAMIN B-12 [Concomitant]
  31. VIAMIN D [Concomitant]

REACTIONS (3)
  - Pain in extremity [None]
  - Paraesthesia [None]
  - Adverse reaction [None]
